FAERS Safety Report 7580350-0 (Version None)
Quarter: 2011Q2

REPORT INFORMATION
  Report Type: 
  Country: None (occurrence: None)
  Receive Date: 20110629
  Receipt Date: 20110620
  Transmission Date: 20111010
  Serious: Yes (Hospitalization)
  Sender: FDA-Public Use
  Company Number: CH-ROCHE-784382

PATIENT
  Sex: Female

DRUGS (1)
  1. VALGANCICLOVIR [Suspect]
     Dosage: DOSE: 900
     Route: 048
     Dates: start: 20040214

REACTIONS (2)
  - PYREXIA [None]
  - CYTOMEGALOVIRUS INFECTION [None]
